FAERS Safety Report 8410717-X (Version None)
Quarter: 2012Q2

REPORT INFORMATION
  Report Type: 
  Country: None (occurrence: None)
  Receive Date: 20120605
  Receipt Date: 20120522
  Transmission Date: 20120825
  Serious: Yes (Hospitalization)
  Sender: FDA-Public Use
  Company Number: US-ELI_LILLY_AND_COMPANY-US201205010034

PATIENT
  Sex: Female

DRUGS (11)
  1. AMLODIPINE [Concomitant]
     Dosage: 5 MG, QD
  2. HUMALOG [Suspect]
     Dosage: 3 U, PRN
     Dates: start: 20120322
  3. SIMVASTATIN [Concomitant]
     Dosage: 20 MG, QD
  4. LEVOTHYROXINE SODIUM [Concomitant]
     Dosage: 100 UG, QD
  5. AMIDARONE [Concomitant]
     Dosage: 200 MG, QD
  6. METOPROLOL TARTRATE [Concomitant]
     Dosage: 50 MG, QD
  7. FORTEO [Suspect]
     Indication: OSTEOPOROSIS
     Dosage: 20 UG, QD
  8. RAMIPRIL [Concomitant]
     Indication: DIABETES MELLITUS
     Dosage: 20 MG, QD
  9. LANTUS [Concomitant]
     Dosage: 10 U, QD
  10. PLAVIX [Concomitant]
     Dosage: 75 MG, QD
  11. BUMETANIDE [Concomitant]
     Dosage: 1 MG, QD

REACTIONS (2)
  - CHEST PAIN [None]
  - CORONARY ARTERY BYPASS [None]
